FAERS Safety Report 8694903 (Version 2)
Quarter: 2012Q4

REPORT INFORMATION
  Report Type: 
  Country: US (occurrence: US)
  Receive Date: 20120731
  Receipt Date: 20120912
  Transmission Date: 20130627
  Serious: Yes (Hospitalization)
  Sender: FDA-Public Use
  Company Number: PHEH2012US014757

PATIENT
  Age: 52 Year
  Sex: Female
  Weight: 57 kg

DRUGS (8)
  1. TOBI [Suspect]
     Indication: CYSTIC FIBROSIS
     Dosage: 300 mg, BID
     Dates: start: 20120430, end: 20120725
  2. LEVOFLOXACIN [Concomitant]
     Dosage: 750 mg, daily
  3. AZTREONAM [Concomitant]
     Dosage: 2 g, Q8H
     Route: 042
  4. PREMPRO [Concomitant]
     Dosage: 1.5 DF, daily
  5. XANAX [Concomitant]
     Dosage: 0.25 UKN, PRN
  6. DYAZIDE [Concomitant]
     Dosage: 1 DF, daily
  7. MOBIC [Concomitant]
     Dosage: 7.5 UKN, PRN
  8. AZITHROMYCIN [Concomitant]
     Dosage: 250 mg, QW3

REACTIONS (6)
  - Pharyngeal oedema [Recovered/Resolved]
  - Bacterial disease carrier [Recovering/Resolving]
  - Pancreatic insufficiency [Recovering/Resolving]
  - Condition aggravated [Recovering/Resolving]
  - Cystic fibrosis [Recovering/Resolving]
  - Cough [Recovering/Resolving]
